FAERS Safety Report 24987186 (Version 1)
Quarter: 2025Q1

REPORT INFORMATION
  Report Type: Spontaneous
  Country: FR (occurrence: FR)
  Receive Date: 20250219
  Receipt Date: 20250219
  Transmission Date: 20250409
  Serious: Yes (Other)
  Sender: TEVA
  Company Number: None

PATIENT
  Age: 60 Year
  Sex: Male

DRUGS (3)
  1. VORICONAZOLE [Suspect]
     Active Substance: VORICONAZOLE
     Indication: Postoperative wound infection
     Route: 048
     Dates: start: 20240819, end: 20240826
  2. PIPERACILLIN SODIUM\TAZOBACTAM SODIUM [Suspect]
     Active Substance: PIPERACILLIN SODIUM\TAZOBACTAM SODIUM
     Indication: Postoperative wound infection
     Route: 042
     Dates: start: 20240731, end: 20240827
  3. TEICOPLANIN [Suspect]
     Active Substance: TEICOPLANIN
     Indication: Postoperative wound infection
     Route: 042
     Dates: start: 20240819, end: 20240827

REACTIONS (1)
  - Neutropenia [Recovered/Resolved]

NARRATIVE: CASE EVENT DATE: 20240826
